FAERS Safety Report 7518767-2 (Version None)
Quarter: 2011Q2

REPORT INFORMATION
  Report Type: 
  Country: None (occurrence: None)
  Receive Date: 20110602
  Receipt Date: 20110527
  Transmission Date: 20111010
  Serious: Yes (Death, Hospitalization)
  Sender: FDA-Public Use
  Company Number: PHHY2011BR46362

PATIENT
  Sex: Female

DRUGS (10)
  1. DIOVAN [Suspect]
     Indication: HYPERTENSION
     Dosage: 80 MG, DAILY
     Route: 048
  2. TRIMETAZIDINE HYDROCHLORIDE [Concomitant]
     Dosage: BID
     Route: 048
  3. APRESOLINE [Concomitant]
     Dosage: 25 MG, BID
     Route: 048
     Dates: end: 20110101
  4. ASPIRIN [Concomitant]
     Dosage: QD
     Route: 048
     Dates: end: 20110101
  5. ISOSORBIDE MONONITRATE [Concomitant]
     Dosage: 0.5 MG, BID
     Route: 048
  6. CLOPIDOGREL [Concomitant]
     Dosage: 75 MG, UNK
     Dates: end: 20110101
  7. PRAVASTATIN SODIUM [Concomitant]
     Dosage: 10 MG, UNK
  8. FUROSEMIDE [Concomitant]
     Dosage: 0.5 MG, UNK
     Route: 048
  9. HYGROTON [Concomitant]
     Dosage: UNK
     Route: 048
     Dates: end: 20110101
  10. POTASSIUM CHLORIDE [Concomitant]
     Dosage: 0.5 MG, UNK
     Route: 048

REACTIONS (7)
  - CEREBROVASCULAR ACCIDENT [None]
  - ATRIAL FIBRILLATION [None]
  - SEDATION [None]
  - HYPOTHYROIDISM [None]
  - RESPIRATORY FAILURE [None]
  - CATARACT [None]
  - DYSPNOEA [None]
